FAERS Safety Report 12726234 (Version 2)
Quarter: 2016Q3

REPORT INFORMATION
  Report Type: Spontaneous
  Country: US (occurrence: US)
  Receive Date: 20160908
  Receipt Date: 20160909
  Transmission Date: 20161109
  Serious: Yes (Other)
  Sender: FDA-Public Use
  Company Number: US-009507513-1504USA011193

PATIENT
  Age: 23 Year
  Sex: Female
  Weight: 72.6 kg

DRUGS (1)
  1. CUBICIN [Suspect]
     Active Substance: DAPTOMYCIN
     Indication: PERIORBITAL CELLULITIS
     Dosage: 300 MG, Q24H
     Route: 042
     Dates: start: 20081208, end: 20090106

REACTIONS (2)
  - Deep vein thrombosis [Not Recovered/Not Resolved]
  - Maternal exposure during pregnancy [Recovered/Resolved]

NARRATIVE: CASE EVENT DATE: 20081228
